FAERS Safety Report 5169121-2 (Version None)
Quarter: 2006Q4

REPORT INFORMATION
  Report Type: 
  Country: None (occurrence: None)
  Receive Date: 20061211
  Receipt Date: 20061130
  Transmission Date: 20070319
  Serious: Yes (Hospitalization)
  Sender: FDA-Public Use
  Company Number: NO-MERCK-0612USA00456

PATIENT
  Age: 49 Year
  Sex: Female

DRUGS (4)
  1. COZAAR [Suspect]
     Indication: HYPERTENSION
     Route: 048
  2. HYDRODIURIL [Suspect]
     Indication: HYPERTENSION
     Route: 048
  3. GLYBURIDE [Suspect]
     Indication: DIABETES MELLITUS NON-INSULIN-DEPENDENT
     Route: 065
  4. METFORMIN [Suspect]
     Indication: DIABETES MELLITUS NON-INSULIN-DEPENDENT
     Route: 048

REACTIONS (9)
  - CIRCULATORY COLLAPSE [None]
  - DEHYDRATION [None]
  - GASTROENTERITIS [None]
  - HYPOGLYCAEMIA [None]
  - HYPOTHERMIA [None]
  - INCORRECT DOSE ADMINISTERED [None]
  - LACTIC ACIDOSIS [None]
  - METABOLIC ACIDOSIS [None]
  - RENAL FAILURE ACUTE [None]
